FAERS Safety Report 9507926 (Version 1)
Quarter: 2013Q3

REPORT INFORMATION
  Report Type: Spontaneous
  Country: IE (occurrence: IE)
  Receive Date: 20130909
  Receipt Date: 20130909
  Transmission Date: 20140515
  Serious: Yes (Hospitalization)
  Sender: FDA-Public Use
  Company Number: PHHY2013FI098387

PATIENT
  Age: 80 Year
  Sex: Male
  Weight: 77.4 kg

DRUGS (6)
  1. STALEVO [Suspect]
     Indication: PARKINSONISM
     Dosage: 4 TIMES IN ONE DAY
     Route: 048
     Dates: start: 20130703, end: 20130815
  2. VIMOVO [Concomitant]
     Indication: OSTEOARTHRITIS
     Dosage: 1 DF, TWO TIMES IN ONE DAY
     Dates: end: 20130815
  3. PRAVAMEL [Concomitant]
     Indication: HYPERCHOLESTEROLAEMIA
     Dosage: NOCTE (10 MG,1 IN 1
  4. HALCION [Concomitant]
     Indication: INSOMNIA
     Dosage: 125 UG, PRN
  5. AZILECT [Concomitant]
     Indication: PARKINSON^S DISEASE
     Dosage: 1 MG, ONCE A DAY
  6. ASPIRIN [Concomitant]
     Indication: THROMBOSIS PROPHYLAXIS
     Dosage: 75 MG, ONE IN DAY

REACTIONS (5)
  - Decreased appetite [Recovered/Resolved]
  - Diarrhoea [Recovered/Resolved]
  - Abdominal pain [Recovered/Resolved]
  - Nausea [Recovered/Resolved]
  - Dizziness postural [Recovered/Resolved]
